FAERS Safety Report 11056308 (Version 1)
Quarter: 2015Q2

REPORT INFORMATION
  Report Type: Spontaneous
  Country: JP (occurrence: JP)
  Receive Date: 20150422
  Receipt Date: 20150422
  Transmission Date: 20150821
  Serious: Yes (Hospitalization, Other)
  Sender: FDA-Public Use
  Company Number: JP-MYLANLABS-2015M1013352

PATIENT

DRUGS (3)
  1. SUNITINIB [Suspect]
     Active Substance: SUNITINIB
     Dosage: 37.5 MG/DAY FOR 2 WEEKS FOLLOWED BY 1 WEEK OF REST
     Route: 065
  2. SUNITINIB [Suspect]
     Active Substance: SUNITINIB
     Indication: GASTROINTESTINAL STROMAL TUMOUR
     Dosage: 50 MG/DAY, 4 WEEKS FOLLOWED BY 2 WEEKS REST
     Route: 065
     Dates: start: 201104
  3. SUNITINIB [Suspect]
     Active Substance: SUNITINIB
     Dosage: 25 MG/DAY FOR 2 WEEKS FOLLOWED BY 1 WEEK OF REST
     Route: 065

REACTIONS (4)
  - Decreased appetite [Recovered/Resolved]
  - Diarrhoea [Recovered/Resolved]
  - Pemphigoid [Recovered/Resolved]
  - Platelet count decreased [Recovered/Resolved]
